FAERS Safety Report 13737754 (Version 1)
Quarter: 2017Q3

REPORT INFORMATION
  Report Type: Report from Study
  Country: US (occurrence: US)
  Receive Date: 20170710
  Receipt Date: 20170710
  Transmission Date: 20171127
  Serious: No
  Sender: FDA-Public Use
  Company Number: US-SAOL THERAPEUTICS-2016SAO00700

PATIENT
  Age: 64 Year
  Sex: Male

DRUGS (8)
  1. COMPOUNDED BACLOFEN [Suspect]
     Active Substance: BACLOFEN
     Indication: PAIN
  2. COMPOUNDED BACLOFEN [Suspect]
     Active Substance: BACLOFEN
     Indication: POST LAMINECTOMY SYNDROME
     Dosage: 40.05 ?G, \DAY
     Route: 037
     Dates: end: 20160812
  3. COMPOUNDED BACLOFEN [Suspect]
     Active Substance: BACLOFEN
     Indication: PAIN
  4. BUPIVACAINE. [Suspect]
     Active Substance: BUPIVACAINE
     Dosage: 4.006 MG, \DAY
     Route: 037
     Dates: start: 20160812
  5. COMPOUNDED BACLOFEN [Suspect]
     Active Substance: BACLOFEN
     Indication: POST LAMINECTOMY SYNDROME
     Dosage: 40.05 ?G, \DAY
     Route: 037
     Dates: start: 20160812
  6. DILAUDID [Suspect]
     Active Substance: HYDROMORPHONE HYDROCHLORIDE
     Dosage: 0.2003 MG, \DAY
     Route: 037
     Dates: end: 20160812
  7. BUPIVACAINE. [Suspect]
     Active Substance: BUPIVACAINE
     Dosage: 4.005 MG, \DAY
     Route: 037
     Dates: end: 20160812
  8. DILAUDID [Suspect]
     Active Substance: HYDROMORPHONE HYDROCHLORIDE
     Dosage: 200.26 ?G, \DAY
     Route: 037
     Dates: end: 20160812

REACTIONS (3)
  - Pain [Recovered/Resolved]
  - Off label use [Unknown]
  - Device battery issue [Recovered/Resolved]

NARRATIVE: CASE EVENT DATE: 20160828
